FAERS Safety Report 8580918-9 (Version None)
Quarter: 2012Q3

REPORT INFORMATION
  Report Type: 
  Country: None (occurrence: None)
  Receive Date: 20120727
  Receipt Date: 20120723
  Transmission Date: 20120928
  Serious: Yes (Death)
  Sender: FDA-Public Use
  Company Number: DSA_58606_2012

PATIENT
  Sex: Female

DRUGS (3)
  1. LOCKPAIN [Concomitant]
  2. RESTORIL /00393701/ [Concomitant]
  3. XENAZINE [Suspect]
     Indication: HUNTINGTON'S DISEASE
     Dosage: (3 TABLETS EVERY MORNING AND 2 TABLETS EVERY EVENING ORAL)
     Route: 048
     Dates: start: 20090201

REACTIONS (1)
  - DEATH [None]
